FAERS Safety Report 18703285 (Version 2)
Quarter: 2021Q1

REPORT INFORMATION
  Report Type: Spontaneous
  Country: US (occurrence: US)
  Receive Date: 20210105
  Receipt Date: 20210107
  Transmission Date: 20210419
  Serious: No
  Sender: FDA-Public Use
  Company Number: US-PFIZER INC-2021002121

PATIENT
  Sex: Female
  Weight: 57.61 kg

DRUGS (1)
  1. LIOTHYRONINE SODIUM. [Suspect]
     Active Substance: LIOTHYRONINE SODIUM
     Indication: THYROID DISORDER
     Dosage: 5 MG, 1X/DAY
     Route: 048

REACTIONS (3)
  - Off label use [Unknown]
  - Asthenia [Unknown]
  - Drug ineffective [Unknown]
